FAERS Safety Report 20689134 (Version 1)
Quarter: 2022Q2

REPORT INFORMATION
  Report Type: Spontaneous
  Country: DE (occurrence: DE)
  Receive Date: 20220408
  Receipt Date: 20220408
  Transmission Date: 20220721
  Serious: Yes (Hospitalization, Other)
  Sender: FDA-Public Use
  Company Number: DE-Accord-260188

PATIENT
  Age: 68 Year
  Sex: Male
  Weight: 77 kg

DRUGS (10)
  1. ETOPOSIDE [Suspect]
     Active Substance: ETOPOSIDE
     Indication: Product used for unknown indication
     Dosage: DOSE: 200
     Dates: start: 20170320, end: 20170322
  2. CYTARABINE [Suspect]
     Active Substance: CYTARABINE
     Indication: Product used for unknown indication
     Dates: start: 20170320, end: 20170326
  3. IDARUBICIN HYDROCHLORIDE [Suspect]
     Active Substance: IDARUBICIN HYDROCHLORIDE
     Indication: Product used for unknown indication
     Dates: start: 20170320, end: 20170322
  4. TRETINOIN [Suspect]
     Active Substance: TRETINOIN
     Indication: Product used for unknown indication
     Dosage: DOSE: 30MG X3
     Dates: start: 20170325, end: 20170327
  5. CITALOPRAM [Concomitant]
     Active Substance: CITALOPRAM HYDROBROMIDE
     Dates: start: 20170424, end: 20170502
  6. PANTOZOL [Concomitant]
     Active Substance: PANTOPRAZOLE SODIUM
     Dates: start: 20170424, end: 20170502
  7. BROMAZEPAM [Concomitant]
     Active Substance: BROMAZEPAM
     Dates: start: 20170424
  8. BISOPROLOL [Concomitant]
     Active Substance: BISOPROLOL
     Dates: start: 20170424, end: 20170428
  9. LENOGRASTIM [Concomitant]
     Active Substance: LENOGRASTIM
     Dates: start: 20170426, end: 20170429
  10. BUTYLSCOPOLAMINE BROMIDE [Concomitant]
     Active Substance: BUTYLSCOPOLAMINE BROMIDE
     Dates: start: 20170429, end: 20170502

REACTIONS (2)
  - Systemic inflammatory response syndrome [Recovered/Resolved]
  - Pneumonia [Recovered/Resolved]

NARRATIVE: CASE EVENT DATE: 20170424
